FAERS Safety Report 8418067-2 (Version None)
Quarter: 2012Q2

REPORT INFORMATION
  Report Type: 
  Country: None (occurrence: None)
  Receive Date: 20120531
  Receipt Date: 20120518
  Transmission Date: 20120825
  Serious: Yes (Other)
  Sender: FDA-Public Use
  Company Number: AUR-APL-2012-02358

PATIENT
  Age: 86 Year
  Sex: Female
  Weight: 59.86 kg

DRUGS (17)
  1. BUSPAR [Concomitant]
  2. OMEPRAZOLE [Concomitant]
  3. ALENDRONATE SODIIUM (ALENDRONATE SODIUM) [Concomitant]
  4. GABAPENTIN [Concomitant]
  5. POTASSIUM CHLORIDE [Concomitant]
  6. VERAPAMIL [Concomitant]
  7. LEVOTHYROXINE SODIUM [Concomitant]
  8. BUSPAR [Concomitant]
  9. LIPITOR [Concomitant]
  10. CELEBREX [Suspect]
     Indication: ARTHRITIS
     Dosage: 200 MG (200 MG, 1 IN 1 D)
     Dates: start: 20120501
  11. LIPITOR [Suspect]
     Indication: PRODUCT USED FOR UNKNOWN INDICATION
     Dosage: 40 MG (40 MG, 1 IN 1 D)
  12. HYDROXYCHLOROQUINE SULFATE [Concomitant]
  13. PREDNISONE TAB [Concomitant]
  14. FUROSEMIJDE (FUROSEMIDE) [Concomitant]
  15. LISINOPRIL [Suspect]
     Indication: HYPERTENSION
     Dosage: 20 T0 25 MG
     Dates: start: 20120501
  16. VERAPAIL (VERAPAMIL) [Concomitant]
  17. CYCLOBENZAPRINE [Concomitant]

REACTIONS (5)
  - RENAL IMPAIRMENT [None]
  - LARYNGITIS [None]
  - RESPIRATORY TRACT INFECTION [None]
  - NECK PAIN [None]
  - FOOT OPERATION [None]
